FAERS Safety Report 6963519-5 (Version None)
Quarter: 2010Q3

REPORT INFORMATION
  Report Type: 
  Country: None (occurrence: None)
  Receive Date: 20100902
  Receipt Date: 20100819
  Transmission Date: 20110219
  Serious: Yes (Other)
  Sender: FDA-Public Use
  Company Number: US-ELI_LILLY_AND_COMPANY-US201008006338

PATIENT
  Age: 32 Year
  Sex: Female

DRUGS (6)
  1. CYMBALTA [Suspect]
     Indication: NEUROPATHY PERIPHERAL
     Dosage: UNK, UNKNOWN
  2. CYMBALTA [Suspect]
     Dosage: 30 MG, UNKNOWN
     Dates: start: 20100814
  3. HUMALOG [Suspect]
     Indication: DIABETES MELLITUS
     Dosage: UNK, UNK
     Dates: start: 19880101
  4. PAIN RELIEF [Concomitant]
     Indication: PAIN
     Dosage: UNK, EVERY 6 HRS
  5. VENLAFAXINE [Concomitant]
  6. LASIX [Concomitant]
     Dosage: 40 MG, UNK

REACTIONS (17)
  - ABASIA [None]
  - ABSCESS [None]
  - ARTHRALGIA [None]
  - COLD SWEAT [None]
  - CRYING [None]
  - DIZZINESS [None]
  - FEAR [None]
  - HEART RATE INCREASED [None]
  - HYPERTENSION [None]
  - IMMUNE SYSTEM DISORDER [None]
  - MALAISE [None]
  - NEGATIVE THOUGHTS [None]
  - PAIN [None]
  - SUICIDAL IDEATION [None]
  - URINARY RETENTION [None]
  - VOMITING [None]
  - WEIGHT DECREASED [None]
